FAERS Safety Report 13132351 (Version 2)
Quarter: 2017Q1

REPORT INFORMATION
  Report Type: Report from Study
  Country: FR (occurrence: FR)
  Receive Date: 20170120
  Receipt Date: 20170202
  Transmission Date: 20170428
  Serious: Yes (Other)
  Sender: FDA-Public Use
  Company Number: FR-UCBSA-2014020577

PATIENT
  Sex: Female
  Weight: 53 kg

DRUGS (2)
  1. METRONIDAZOLE. [Concomitant]
     Active Substance: METRONIDAZOLE
     Indication: ROSACEA
     Dosage: UNK
     Dates: start: 201412, end: 201507
  2. CERTOLIZUMAB PEGOL RA [Suspect]
     Active Substance: CERTOLIZUMAB PEGOL
     Indication: PRODUCT USED FOR UNKNOWN INDICATION
     Dosage: 200 MG,

REACTIONS (3)
  - Cutaneous lupus erythematosus [Recovering/Resolving]
  - In vitro fertilisation [Unknown]
  - Pruritus [Not Recovered/Not Resolved]

NARRATIVE: CASE EVENT DATE: 20140425
